FAERS Safety Report 7957890-5 (Version None)
Quarter: 2011Q4

REPORT INFORMATION
  Report Type: 
  Country: None (occurrence: None)
  Receive Date: 20111205
  Receipt Date: 20111122
  Transmission Date: 20120403
  Serious: Yes (Hospitalization)
  Sender: FDA-Public Use
  Company Number: JP-CTI_01405_2011

PATIENT
  Sex: Male

DRUGS (7)
  1. LEVOFLOXACIN HYDRATE [Concomitant]
     Indication: RESPIRATORY TRACT INFECTION
     Dosage: DAILY DOSE 500 MG
     Route: 048
     Dates: start: 20091117, end: 20091213
  2. POLYENEPHOSPHATIDYLCHOLINE [Concomitant]
     Indication: HEPATIC STEATOSIS
     Dosage: DAILY DOSE 500 MG
     Route: 048
     Dates: start: 20090202, end: 20091211
  3. DICLOFENAC SODIUM [Concomitant]
     Indication: BACK PAIN
     Dosage: DAILY DOSE UNKNOWN
     Route: 061
     Dates: start: 20091109
  4. CHINESE HERBAL MEDICINE (BOFUTSUSHOSAN) [Concomitant]
     Indication: OBESITY
     Route: 048
     Dates: start: 20091109, end: 20091209
  5. MEIACT MS - CEFDITOREN PIVOXIL [Suspect]
     Indication: BRONCHITIS
     Dosage: DAILY DOSE 300 MG
     Route: 048
     Dates: start: 20091117, end: 20091121
  6. AMBROXOL HYDROCHLORIDE [Concomitant]
     Indication: RESPIRATORY TRACT INFECTION
     Dosage: DAILY DOSE 45 MG
     Route: 048
     Dates: start: 20091204, end: 20091213
  7. SEMI-ALKALINE PROTEINASE [Concomitant]
     Indication: RESPIRATORY TRACT INFECTION
     Dosage: DAILY DOSE 45 MG
     Route: 048
     Dates: start: 20091117, end: 20091213

REACTIONS (3)
  - PNEUMONIA [None]
  - DECREASED APPETITE [None]
  - INTERSTITIAL LUNG DISEASE [None]
